FAERS Safety Report 9653194 (Version 2)
Quarter: 2013Q4

REPORT INFORMATION
  Report Type: Spontaneous
  Country: US (occurrence: US)
  Receive Date: 20131029
  Receipt Date: 20131120
  Transmission Date: 20140711
  Serious: Yes (Death)
  Sender: FDA-Public Use
  Company Number: US-GLAXOSMITHKLINE-A1047390A

PATIENT
  Sex: Male

DRUGS (11)
  1. PROMACTA [Suspect]
     Indication: THROMBOCYTOPENIA
     Dosage: 50MG PER DAY
     Route: 048
     Dates: start: 20100518
  2. COZAAR [Concomitant]
  3. METFORMIN [Concomitant]
  4. SPIRONOLACTONE [Concomitant]
  5. FUROSEMIDE [Concomitant]
  6. ZONISAMIDE [Concomitant]
  7. MIRAPEX [Concomitant]
  8. UNKNOWN [Concomitant]
  9. NADOLOL [Concomitant]
  10. CARBIDOPA/LEVODOPA [Concomitant]
  11. DIOVAN [Concomitant]

REACTIONS (1)
  - Death [Fatal]
